FAERS Safety Report 16808777 (Version 1)
Quarter: 2019Q4

REPORT INFORMATION
  Report Type: Spontaneous
  Country: US (occurrence: US)
  Receive Date: 20190913
  Receipt Date: 20190913
  Transmission Date: 20200122
  Serious: Yes (Hospitalization, Disabling, Other)
  Sender: FDA-Public Use
  Company Number: None

PATIENT
  Age: 69 Year
  Sex: Female
  Weight: 59.4 kg

DRUGS (10)
  1. ATORVASTATIN [Concomitant]
     Active Substance: ATORVASTATIN
  2. CALCIUM [Concomitant]
     Active Substance: CALCIUM
  3. SAFFRON [Concomitant]
     Active Substance: SAFFRON
  4. IBANDRONATE SODIUM TABLET, COMMONLY KNOWN AS BONIVA [Suspect]
     Active Substance: IBANDRONATE SODIUM
     Indication: OSTEOPOROSIS
     Dosage: ?          QUANTITY:1 TABLET(S);OTHER FREQUENCY:MONTHLY;?
     Route: 048
     Dates: start: 20140901, end: 20190201
  5. FISH OIL [Concomitant]
     Active Substance: FISH OIL
  6. LOW DOSE ASPIRIN [Concomitant]
     Active Substance: ASPIRIN
  7. AREDS 2 [Concomitant]
     Active Substance: MINERALS\VITAMINS
  8. DAILY MULTIVITAMIN [Concomitant]
     Active Substance: VITAMINS
  9. CONCENTRATED TART CHERRY [Concomitant]
  10. LISINOPRIL. [Concomitant]
     Active Substance: LISINOPRIL

REACTIONS (4)
  - Femur fracture [None]
  - Arthralgia [None]
  - Fall [None]
  - Internal fixation of fracture [None]

NARRATIVE: CASE EVENT DATE: 20190205
